FAERS Safety Report 6757137-1 (Version None)
Quarter: 2010Q2

REPORT INFORMATION
  Report Type: 
  Country: None (occurrence: None)
  Receive Date: 20100605
  Receipt Date: 20100521
  Transmission Date: 20101027
  Serious: Yes (Hospitalization)
  Sender: FDA-Public Use
  Company Number: RS-ROCHE-701213

PATIENT
  Sex: Female
  Weight: 56 kg

DRUGS (6)
  1. ACTEMRA [Suspect]
     Indication: RHEUMATOID ARTHRITIS
     Dosage: STARTING DOSE:8 MG/KG
     Route: 042
     Dates: start: 20091110
  2. ACTEMRA [Suspect]
     Route: 042
     Dates: start: 20091208
  3. ACTEMRA [Suspect]
     Route: 042
     Dates: start: 20100202
  4. ACTEMRA [Suspect]
     Route: 042
     Dates: start: 20100302
  5. ACTEMRA [Suspect]
     Route: 042
     Dates: start: 20100330
  6. MOVALIS [Suspect]
     Indication: RHEUMATOID ARTHRITIS
     Route: 048
     Dates: start: 20070101

REACTIONS (3)
  - GASTROINTESTINAL HAEMORRHAGE [None]
  - HYPOCHROMIC ANAEMIA [None]
  - ILEITIS [None]
